FAERS Safety Report 9556931 (Version 2)
Quarter: 2013Q3

REPORT INFORMATION
  Report Type: Report from Study
  Country: JP (occurrence: JP)
  Receive Date: 20130926
  Receipt Date: 20130926
  Transmission Date: 20140515
  Serious: Yes (Life-Threatening, Other)
  Sender: FDA-Public Use
  Company Number: JP-TAKEDA-TPA2013A06816

PATIENT
  Sex: 0

DRUGS (5)
  1. FEBURIC [Suspect]
     Indication: HYPERURICAEMIA
     Dosage: 20 MG, QD
     Route: 048
     Dates: start: 20120831
  2. OLMETEC [Concomitant]
     Indication: HYPERTENSION
     Dosage: 20 MG, QD
     Route: 048
     Dates: start: 20080830
  3. CARVEDILOL [Concomitant]
     Indication: HYPERTENSION
     Dosage: 20 MG, QD
     Route: 048
     Dates: start: 20060606
  4. GASMOTIN [Concomitant]
     Indication: GASTRITIS PROPHYLAXIS
     Dosage: 5 MG, QD
     Route: 048
     Dates: start: 20060628
  5. FLUITRAN [Concomitant]
     Indication: HYPERTENSION
     Dosage: 1 MG, QD
     Route: 048
     Dates: start: 20120403

REACTIONS (1)
  - Cerebral haemorrhage [Recovered/Resolved with Sequelae]
